FAERS Safety Report 8762803 (Version 2)
Quarter: 2012Q4

REPORT INFORMATION
  Report Type: 
  Country: US (occurrence: US)
  Receive Date: 20120830
  Receipt Date: 20121011
  Transmission Date: 20130627
  Serious: Yes (Hospitalization, Other)
  Sender: FDA-Public Use
  Company Number: US-JNJFOC-20120811661

PATIENT
  Sex: Male
  Weight: 68.04 kg

DRUGS (2)
  1. PANCREASE MT [Suspect]
     Indication: GASTROINTESTINAL DISORDER
     Route: 048
     Dates: end: 201201
  2. MULTIPLE MEDICATIONS UNSPECIFIED [Concomitant]
     Route: 065

REACTIONS (2)
  - Cystic fibrosis [Recovered/Resolved]
  - Drug ineffective [Not Recovered/Not Resolved]
